FAERS Safety Report 7454477-8 (Version None)
Quarter: 2011Q2

REPORT INFORMATION
  Report Type: 
  Country: None (occurrence: None)
  Receive Date: 20110425
  Receipt Date: 20110408
  Transmission Date: 20111010
  Serious: Yes (Hospitalization)
  Sender: FDA-Public Use
  Company Number: 021445

PATIENT
  Sex: Female
  Weight: 92 kg

DRUGS (5)
  1. OMEPRAZOL AGEN [Concomitant]
  2. CIMZIA [Suspect]
     Indication: RHEUMATOID ARTHRITIS
     Dosage: (SUBCUTANEOUS) ; (SUBCUTANEOUS)
     Route: 058
     Dates: start: 20101102
  3. CIMZIA [Suspect]
     Indication: RHEUMATOID ARTHRITIS
     Dosage: (SUBCUTANEOUS) ; (SUBCUTANEOUS)
     Route: 058
     Dates: start: 20100921, end: 20101019
  4. ALLOPURINOL [Concomitant]
  5. IBUPROFEN [Concomitant]

REACTIONS (4)
  - LUMBAR RADICULOPATHY [None]
  - ARTHROSCOPY [None]
  - INTERVERTEBRAL DISC DISORDER [None]
  - MUSCULOSKELETAL PAIN [None]
